FAERS Safety Report 5935643-7 (Version None)
Quarter: 2008Q4

REPORT INFORMATION
  Report Type: 
  Country: None (occurrence: None)
  Receive Date: 20081030
  Receipt Date: 20081022
  Transmission Date: 20090506
  Serious: Yes (Other)
  Sender: FDA-Public Use
  Company Number: DE-ABBOTT-08P-062-0484406-00

PATIENT
  Sex: Male
  Weight: 85 kg

DRUGS (1)
  1. NIASPAN [Suspect]
     Indication: LIPID METABOLISM DISORDER
     Dosage: 500-2000 MG (1 IN 1D)
     Route: 048
     Dates: start: 20080101, end: 20080701

REACTIONS (3)
  - MALAISE [None]
  - PRURITUS [None]
  - SKIN BURNING SENSATION [None]
